FAERS Safety Report 13737895 (Version 1)
Quarter: 2017Q3

REPORT INFORMATION
  Report Type: Spontaneous
  Country: US (occurrence: US)
  Receive Date: 20170710
  Receipt Date: 20170710
  Transmission Date: 20171127
  Serious: Yes (Hospitalization, Other)
  Sender: FDA-Public Use
  Company Number: US-SAOL THERAPEUTICS-2016SAO00501

PATIENT
  Age: 68 Year
  Sex: Female

DRUGS (6)
  1. DILAUDID [Suspect]
     Active Substance: HYDROMORPHONE HYDROCHLORIDE
     Dosage: 2.64 MG, \DAY
     Route: 037
  2. COMPOUNDED BACLOFEN [Suspect]
     Active Substance: BACLOFEN
     Indication: PAIN
     Dosage: 26.4 ?G, \DAY
     Route: 037
  3. DILAUDID [Suspect]
     Active Substance: HYDROMORPHONE HYDROCHLORIDE
     Dosage: 3.9 MG, \DAY
     Route: 037
  4. BUPIVACAINE. [Suspect]
     Active Substance: BUPIVACAINE
     Dosage: 26.4 MG, \DAY
     Route: 037
  5. COMPOUNDED BACLOFEN [Suspect]
     Active Substance: BACLOFEN
     Indication: POST LAMINECTOMY SYNDROME
     Dosage: 39.05 ?G, \DAY
     Route: 037
  6. BUPIVACAINE. [Suspect]
     Active Substance: BUPIVACAINE
     Dosage: 3.905 MG, \DAY
     Route: 037

REACTIONS (15)
  - Drug withdrawal syndrome [Unknown]
  - Drug ineffective for unapproved indication [Unknown]
  - Device alarm issue [Unknown]
  - Chills [Unknown]
  - Device failure [Unknown]
  - Anxiety [Unknown]
  - Malaise [Unknown]
  - Unevaluable event [Unknown]
  - Swelling [Recovered/Resolved]
  - Wound [Unknown]
  - Device loosening [Unknown]
  - Hyperhidrosis [Unknown]
  - Incorrect route of drug administration [Unknown]
  - Device issue [Unknown]
  - Discomfort [Unknown]

NARRATIVE: CASE EVENT DATE: 2016
